FAERS Safety Report 22923674 (Version 8)
Quarter: 2024Q4

REPORT INFORMATION
  Report Type: Report from Study
  Country: SA (occurrence: SA)
  Receive Date: 20230908
  Receipt Date: 20241225
  Transmission Date: 20250115
  Serious: Yes (Hospitalization, Other)
  Sender: ROCHE
  Company Number: SA-ROCHE-3312849

PATIENT
  Age: 11 Year
  Sex: Female
  Weight: 27.0 kg

DRUGS (6)
  1. EVRYSDI [Suspect]
     Active Substance: RISDIPLAM
     Indication: Spinal muscular atrophy
     Route: 048
     Dates: start: 20230310, end: 20241217
  2. EVRYSDI [Suspect]
     Active Substance: RISDIPLAM
     Route: 048
  3. EVRYSDI [Suspect]
     Active Substance: RISDIPLAM
     Route: 048
  4. EVRYSDI [Suspect]
     Active Substance: RISDIPLAM
     Route: 048
  5. EVRYSDI [Suspect]
     Active Substance: RISDIPLAM
     Route: 048
  6. EVRYSDI [Suspect]
     Active Substance: RISDIPLAM
     Route: 048

REACTIONS (14)
  - Headache [Recovered/Resolved]
  - Pain [Not Recovered/Not Resolved]
  - Arthralgia [Not Recovered/Not Resolved]
  - Back pain [Recovered/Resolved]
  - Pain in extremity [Unknown]
  - Pyrexia [Not Recovered/Not Resolved]
  - Influenza [Recovering/Resolving]
  - Vomiting [Recovering/Resolving]
  - Oropharyngeal pain [Not Recovered/Not Resolved]
  - Fatigue [Recovered/Resolved]
  - Hypoxia [Recovered/Resolved]
  - Pulmonary oedema [Recovered/Resolved]
  - Arthralgia [Recovered/Resolved]
  - Drug ineffective [Unknown]

NARRATIVE: CASE EVENT DATE: 20230310
